FAERS Safety Report 8105344-8 (Version None)
Quarter: 2012Q1

REPORT INFORMATION
  Report Type: 
  Country: None (occurrence: None)
  Receive Date: 20120201
  Receipt Date: 20120127
  Transmission Date: 20120608
  Serious: Yes (Hospitalization, Other)
  Sender: FDA-Public Use
  Company Number: US-PFIZER INC-2012022392

PATIENT
  Sex: Female
  Weight: 91.61 kg

DRUGS (8)
  1. AMOXICILLIN [Suspect]
     Indication: PAIN
     Dosage: 500 MG, 2X/DAY
  2. BACTRIM [Suspect]
     Indication: PAIN
     Dosage: 500 MG, TWO TIMES A DAY FOR THE FIRST DAY AND DAILY FOR THE NEXT FOUR DAYS
  3. ENALAPRIL [Concomitant]
     Indication: HYPERTENSION
     Dosage: 40 MG, 1X/DAY
  4. CHANTIX [Suspect]
     Indication: SMOKING CESSATION THERAPY
     Dosage: 0.5 MG DAILY
     Route: 048
     Dates: start: 20110401
  5. LANTUS [Concomitant]
     Indication: DIABETES MELLITUS
     Dosage: 100 ML, 1X/DAY
  6. NOVOLOG [Concomitant]
     Indication: DIABETES MELLITUS
     Dosage: UNKNOWN DOSE AS NEEDED
  7. KEFLEX [Suspect]
     Indication: PAIN
     Dosage: 500 MG, 3X/DAY
     Dates: end: 20120101
  8. CHANTIX [Suspect]
     Dosage: UNK
     Route: 048

REACTIONS (5)
  - NAUSEA [None]
  - VAGINAL PROLAPSE [None]
  - ULCER [None]
  - PAIN [None]
  - DRUG INEFFECTIVE [None]
